FAERS Safety Report 17162937 (Version 3)
Quarter: 2020Q2

REPORT INFORMATION
  Report Type: Report from Study
  Country: None (occurrence: US)
  Receive Date: 20191217
  Receipt Date: 20200417
  Transmission Date: 20200713
  Serious: Yes (Hospitalization, Other)
  Sender: FDA-Public Use
  Company Number: US-ABBVIE-19P-163-3193469-00

PATIENT
  Sex: Male

DRUGS (3)
  1. IMBRUVICA [Suspect]
     Active Substance: IBRUTINIB
     Route: 048
  2. IRON [Suspect]
     Active Substance: IRON
     Indication: PRODUCT USED FOR UNKNOWN INDICATION
     Route: 065
  3. IMBRUVICA [Suspect]
     Active Substance: IBRUTINIB
     Indication: CHRONIC LYMPHOCYTIC LEUKAEMIA
     Route: 048
     Dates: start: 20190831

REACTIONS (10)
  - Post procedural haemorrhage [Unknown]
  - Peripheral vascular disorder [Unknown]
  - White blood cell count decreased [Unknown]
  - Neuropathy peripheral [Unknown]
  - Haemoglobin increased [Unknown]
  - Bronchitis [Unknown]
  - Constipation [Unknown]
  - Tooth loss [Unknown]
  - Polyp [Unknown]
  - Gastrooesophageal reflux disease [Unknown]
